FAERS Safety Report 7564423-4 (Version None)
Quarter: 2011Q2

REPORT INFORMATION
  Report Type: 
  Country: None (occurrence: None)
  Receive Date: 20110622
  Receipt Date: 20110610
  Transmission Date: 20111010
  Serious: Yes (Other)
  Sender: FDA-Public Use
  Company Number: PHHY2011US51735

PATIENT
  Sex: Female

DRUGS (1)
  1. NEORAL [Suspect]
     Dosage: 100 MG DAILY
     Dates: start: 20040928

REACTIONS (1)
  - ATRIAL FIBRILLATION [None]
